FAERS Safety Report 6433197-2 (Version None)
Quarter: 2009Q4

REPORT INFORMATION
  Report Type: 
  Country: None (occurrence: None)
  Receive Date: 20091109
  Receipt Date: 20091104
  Transmission Date: 20100525
  Serious: Yes (Death, Hospitalization)
  Sender: FDA-Public Use
  Company Number: PHEH2009US14938

PATIENT
  Sex: Female
  Weight: 55.782 kg

DRUGS (1)
  1. EXJADE [Suspect]
     Dosage: 1250 MG PER DAY
     Route: 048
     Dates: start: 20090824

REACTIONS (3)
  - DEATH [None]
  - PAIN [None]
  - PAIN OF SKIN [None]
